FAERS Safety Report 22390749 (Version 3)
Quarter: 2024Q1

REPORT INFORMATION
  Report Type: Spontaneous
  Country: US (occurrence: US)
  Receive Date: 20230531
  Receipt Date: 20240318
  Transmission Date: 20240410
  Serious: No
  Sender: FDA-Public Use
  Company Number: US-KARYOPHARM-2023KPT001270

PATIENT

DRUGS (14)
  1. XPOVIO [Suspect]
     Active Substance: SELINEXOR
     Indication: Plasma cell myeloma
     Dosage: 80 MG, WEEKLY, ON DAYS 1,8, 15, AND 22 OF A 28 DAY CYCLE
     Route: 048
     Dates: start: 20230414
  2. ACYCLOVIR [Concomitant]
     Active Substance: ACYCLOVIR
  3. BENADRYL [Concomitant]
     Active Substance: DIPHENHYDRAMINE HYDROCHLORIDE
  4. BUMETANIDE [Concomitant]
     Active Substance: BUMETANIDE
  5. DARZALEX [Concomitant]
     Active Substance: DARATUMUMAB
  6. DEXAMETHASONE [Concomitant]
     Active Substance: DEXAMETHASONE
  7. FINASTERIDE [Concomitant]
     Active Substance: FINASTERIDE
  8. KYPROLIS [Concomitant]
     Active Substance: CARFILZOMIB
  9. METHYLPREDNISOLONE [Concomitant]
     Active Substance: METHYLPREDNISOLONE
  10. OLANZAPINE [Concomitant]
     Active Substance: OLANZAPINE
  11. POTASSIUM [Concomitant]
     Active Substance: POTASSIUM
  12. TAMSULOSIN [Concomitant]
     Active Substance: TAMSULOSIN
  13. VIAGRA [Concomitant]
     Active Substance: SILDENAFIL CITRATE
  14. LATANOPROST [Concomitant]
     Active Substance: LATANOPROST

REACTIONS (6)
  - Night sweats [Unknown]
  - Fatigue [Not Recovered/Not Resolved]
  - Asthenia [Unknown]
  - Upper respiratory tract infection [Unknown]
  - Pyrexia [Unknown]
  - Dyspnoea [Unknown]

NARRATIVE: CASE EVENT DATE: 20230501
